FAERS Safety Report 21871072 (Version 2)
Quarter: 2023Q1

REPORT INFORMATION
  Report Type: Report from Study
  Country: CN (occurrence: None)
  Receive Date: 20230117
  Receipt Date: 20230215
  Transmission Date: 20230418
  Serious: Yes (Hospitalization)
  Sender: FDA-Public Use
  Company Number: CN-ROCHE-3261905

PATIENT
  Age: 69 Year
  Sex: Male
  Weight: 74 kg

DRUGS (2)
  1. TIRAGOLUMAB [Suspect]
     Active Substance: TIRAGOLUMAB
     Indication: Non-small cell lung cancer stage III
     Dosage: ON 15/DEC/2022, HE HAD THE MOST RECENT DOSE OF 840 MG TIRAGOLUMAB PRIOR TO AE.
     Route: 042
     Dates: start: 20221028
  2. ATEZOLIZUMAB [Suspect]
     Active Substance: ATEZOLIZUMAB
     Indication: Non-small cell lung cancer stage III
     Dosage: ON 15/DEC/2022, HE HAD THE MOST RECENT DOSE OF 1680 MG ATEZOLIZUMAB PRIOR TO AE.
     Route: 041
     Dates: start: 20221028

REACTIONS (1)
  - Pneumonitis [Not Recovered/Not Resolved]

NARRATIVE: CASE EVENT DATE: 20230110
